FAERS Safety Report 8988350 (Version 1)
Quarter: 2012Q4

REPORT INFORMATION
  Report Type: Spontaneous
  Country: US (occurrence: None)
  Receive Date: 20121220
  Receipt Date: 20121220
  Transmission Date: 20130627
  Serious: Yes (Life-Threatening, Hospitalization)
  Sender: FDA-Public Use
  Company Number: None

PATIENT
  Age: 84 Year
  Sex: Female
  Weight: 59.42 kg

DRUGS (1)
  1. METHOTREXATE [Suspect]
     Indication: RA
     Dosage: 4 tabs by mouth weekly po
     Route: 048
     Dates: start: 19990101, end: 20121030

REACTIONS (5)
  - Asthenia [None]
  - Weight decreased [None]
  - Decreased appetite [None]
  - Full blood count decreased [None]
  - Apparent death [None]
